FAERS Safety Report 6793181-6 (Version None)
Quarter: 2010Q2

REPORT INFORMATION
  Report Type: 
  Country: None (occurrence: None)
  Receive Date: 20100624
  Receipt Date: 20090903
  Transmission Date: 20101027
  Serious: Yes (Death)
  Sender: FDA-Public Use
  Company Number: US-MYLANLABS-2009S1012453

PATIENT
  Age: 51 Year
  Sex: Male
  Weight: 127.01 kg

DRUGS (9)
  1. CLOZAPINE [Suspect]
     Indication: SCHIZOPHRENIA
     Route: 048
     Dates: start: 20080325, end: 20090702
  2. CLOZAPINE [Suspect]
     Route: 048
     Dates: start: 20080325, end: 20090702
  3. AVANDIA [Concomitant]
     Dates: start: 20080701, end: 20090702
  4. BENICAR [Concomitant]
     Dates: start: 20090301, end: 20090702
  5. CYMBALTA [Concomitant]
     Dates: start: 20080417, end: 20090702
  6. KLONOPIN [Concomitant]
     Dates: start: 20080318, end: 20090702
  7. GLUCOPHAGE [Concomitant]
     Dates: start: 20040901, end: 20090702
  8. RANITIDINE [Concomitant]
     Dates: start: 20040901, end: 20090702
  9. SINGULAIR [Concomitant]
     Dates: start: 20080717, end: 20090702

REACTIONS (1)
  - CARDIAC ARREST [None]
